FAERS Safety Report 6460679-X (Version None)
Quarter: 2009Q4

REPORT INFORMATION
  Report Type: 
  Country: None (occurrence: None)
  Receive Date: 20091130
  Receipt Date: 20091123
  Transmission Date: 20100525
  Serious: Yes (Other)
  Sender: FDA-Public Use
  Company Number: US-BRACCO-003722

PATIENT
  Sex: Female

DRUGS (2)
  1. GADOLINIUM [Suspect]
     Route: 065
  2. PROHANCE [Suspect]
     Route: 065

REACTIONS (1)
  - NEPHROGENIC SYSTEMIC FIBROSIS [None]
